FAERS Safety Report 4797465-2 (Version None)
Quarter: 2005Q4

REPORT INFORMATION
  Report Type: 
  Country: None (occurrence: None)
  Receive Date: 20051006
  Receipt Date: 20051006
  Transmission Date: 20060501
  Serious: Yes (Life-Threatening, Hospitalization)
  Sender: FDA-Public Use
  Company Number: None

PATIENT
  Age: 20 Year
  Sex: Male
  Weight: 82 kg

DRUGS (16)
  1. LANTUS [Suspect]
     Indication: DIABETES MELLITUS INSULIN-DEPENDENT
     Dosage: 11 UNITS SQ Q AM / 12 U Q PM
     Route: 058
  2. HUMALOG [Suspect]
     Dosage: 2 UNITS AC MEALS
  3. ACTAGOL [Concomitant]
  4. ACTISOL [Concomitant]
  5. ALDACTONE [Concomitant]
  6. CELLCEPT [Concomitant]
  7. ELAVIL [Concomitant]
  8. EPOGEN [Concomitant]
  9. FENTANYL [Concomitant]
  10. INSULIN [Concomitant]
  11. LASIX [Concomitant]
  12. PREVACID [Concomitant]
  13. SIROLIMUS [Concomitant]
  14. VERAPAMIL [Concomitant]
  15. ZOLOFT [Concomitant]
  16. NEURONTIN [Concomitant]

REACTIONS (6)
  - ABDOMINAL PAIN [None]
  - CHEST PAIN [None]
  - DIABETIC KETOACIDOSIS [None]
  - DRUG DOSE OMISSION [None]
  - HYPERGLYCAEMIA [None]
  - TREATMENT NONCOMPLIANCE [None]
